FAERS Safety Report 17005452 (Version 1)
Quarter: 2019Q4

REPORT INFORMATION
  Report Type: Spontaneous
  Country: US (occurrence: US)
  Receive Date: 20191107
  Receipt Date: 20191107
  Transmission Date: 20200122
  Serious: No
  Sender: FDA-Public Use
  Company Number: US-ASTRAZENECA-2019SF44052

PATIENT
  Sex: Male
  Weight: 70.3 kg

DRUGS (3)
  1. FASENRA [Suspect]
     Active Substance: BENRALIZUMAB
     Indication: WHITE BLOOD CELL COUNT INCREASED
     Route: 058
     Dates: start: 201811
  2. IRON [Concomitant]
     Active Substance: IRON
     Indication: ANAEMIA
  3. FASENRA [Suspect]
     Active Substance: BENRALIZUMAB
     Indication: CHRONIC OBSTRUCTIVE PULMONARY DISEASE
     Route: 058
     Dates: start: 201811

REACTIONS (3)
  - Anaemia [Unknown]
  - Product dose omission [Unknown]
  - Product distribution issue [Unknown]
